FAERS Safety Report 26052708 (Version 1)
Quarter: 2025Q4

REPORT INFORMATION
  Report Type: Spontaneous
  Country: EU (occurrence: EU)
  Receive Date: 20251117
  Receipt Date: 20251117
  Transmission Date: 20260118
  Serious: Yes (Other)
  Sender: OCTAPHARMA
  Company Number: EU-PEI-202500023451

PATIENT
  Age: 64 Year
  Sex: Male

DRUGS (1)
  1. ALBUMIN HUMAN [Suspect]
     Active Substance: ALBUMIN HUMAN
     Indication: Haemoglobin decreased
     Dates: start: 20251018

REACTIONS (2)
  - Pulmonary oedema [Not Recovered/Not Resolved]
  - Dyspnoea [Not Recovered/Not Resolved]

NARRATIVE: CASE EVENT DATE: 20251019
